FAERS Safety Report 9412745 (Version 1)
Quarter: 2013Q3

REPORT INFORMATION
  Report Type: Spontaneous
  Country: BR (occurrence: BR)
  Receive Date: 20130722
  Receipt Date: 20130722
  Transmission Date: 20140515
  Serious: Yes (Hospitalization, Other)
  Sender: FDA-Public Use
  Company Number: BR-BAYER-2013-086900

PATIENT
  Age: 20 Day
  Sex: Male

DRUGS (1)
  1. AVALOX [Suspect]
     Route: 063

REACTIONS (3)
  - Haematochezia [Recovered/Resolved]
  - Haematochezia [Recovered/Resolved]
  - Exposure during breast feeding [None]
